FAERS Safety Report 10258479 (Version 1)
Quarter: 2014Q2

REPORT INFORMATION
  Report Type: Spontaneous
  Country: US (occurrence: None)
  Receive Date: 20140623
  Receipt Date: 20140623
  Transmission Date: 20141212
  Serious: Yes (Other)
  Sender: FDA-Public Use
  Company Number: US-RRD-14-00071

PATIENT
  Age: 69 Year
  Sex: Female

DRUGS (12)
  1. PANHEMATIN [Suspect]
     Indication: PORPHYRIA ACUTE
     Dosage: (EVERY 2 WEEKS FOR ABOUT 3 MONTHS)
     Route: 042
     Dates: start: 2013
  2. BETA GLUTEN [Concomitant]
  3. AMATOL (MEBENDAZOLE) (MEBENDAZOLE) [Concomitant]
  4. VICODIN (VICODIN) (PARACETAMOL, HYDROCODONE BITARTRATE) [Concomitant]
  5. MELATONIN (MELATONIN) (MELATONIN) [Concomitant]
  6. ATIVAN (LORAZEPAM) (LOREZEPAM) [Concomitant]
  7. MISOPROSTOL (MISOPROSTOL) (MISOPROSTOL) [Concomitant]
  8. ESTRADIOL (ESTRADIOL) (ESTRADIOL) [Concomitant]
  9. SINGULAR (MONTELUKAST SODIUM) (MONTELUKAST SODIUM) [Concomitant]
  10. ALBUTEROL (SALBUTAMOL) (SALBUTAMOL) [Concomitant]
  11. IBUPROFEN (IBUPROFEN) [Concomitant]
  12. THYROID (THYROID) (THYROID) [Concomitant]

REACTIONS (9)
  - Cellulitis [None]
  - Venous injury [None]
  - Extravasation [None]
  - Thrombophlebitis superficial [None]
  - Infection [None]
  - Wrong technique in drug usage process [None]
  - Drug hypersensitivity [None]
  - Dizziness [None]
  - Dizziness [None]
